FAERS Safety Report 9215621 (Version 1)
Quarter: 2013Q2

REPORT INFORMATION
  Report Type: Spontaneous
  Country: CO (occurrence: CO)
  Receive Date: 20130408
  Receipt Date: 20130408
  Transmission Date: 20140414
  Serious: Yes (Other)
  Sender: FDA-Public Use
  Company Number: CO-AMGEN-COLSP2013022828

PATIENT
  Age: 65 Year
  Sex: Female

DRUGS (11)
  1. ENBREL [Suspect]
     Indication: RHEUMATOID ARTHRITIS
     Dosage: 50 MG, WEEKLY
     Route: 058
     Dates: start: 2010, end: 20130106
  2. CAPTOPRIL [Concomitant]
     Indication: HYPERTENSION
     Dosage: 100 MG, 3X/DAY
     Route: 048
     Dates: start: 2003
  3. METOPROLOL [Concomitant]
     Indication: HYPERTENSION
     Dosage: 100 MG, 2X/DAY
     Route: 048
     Dates: start: 2007
  4. ASA [Concomitant]
     Indication: HYPERTENSION
     Dosage: 100 MG, ALTERNATE DAY
     Route: 048
     Dates: start: 2003
  5. ACETAMINOPHEN [Concomitant]
     Indication: PAIN
     Dosage: 500 MG, AS NEEDED
     Route: 048
  6. HYDROCHLOROTHIAZIDE [Concomitant]
     Indication: FLUID RETENTION
     Dosage: 5 MG, 1X/DAY
     Dates: start: 2003
  7. TEAR DROP [Concomitant]
     Dosage: ONE DROP IN EVERY EYE 3 TIMES PER DAY
  8. PREDNISOLONE [Concomitant]
     Dosage: 5 MG, ONE TABLET AND HALF
     Dates: start: 2009
  9. METHOTREXATE [Concomitant]
     Dosage: 2.5 MG 3 TABLET EVERY WEDNESDAY
     Dates: start: 2009
  10. CALCIUM CARBONATE [Concomitant]
     Dosage: 500 MG, 2X/DAY
     Dates: start: 2009
  11. FOLIC ACID [Concomitant]
     Indication: PROPHYLAXIS
     Dosage: UNK

REACTIONS (2)
  - Depression [Not Recovered/Not Resolved]
  - Eye infection [Not Recovered/Not Resolved]
